FAERS Safety Report 9994841 (Version 3)
Quarter: 2014Q2

REPORT INFORMATION
  Report Type: Spontaneous
  Country: IT (occurrence: None)
  Receive Date: 20140306
  Receipt Date: 20140408
  Transmission Date: 20141212
  Serious: Yes (Hospitalization)
  Sender: FDA-Public Use
  Company Number: AUR-APL-2014-02405

PATIENT
  Age: 85 Year
  Sex: Female

DRUGS (3)
  1. AMOXICILLIN [Suspect]
     Indication: BRONCHITIS
     Route: 048
     Dates: start: 20140131, end: 20140205
  2. VALSARTAN [Suspect]
     Indication: HYPERTENSION
     Route: 048
     Dates: start: 20080623, end: 20140205
  3. COUMADIN [Suspect]
     Indication: ATRIAL FIBRILLATION
     Route: 048
     Dates: start: 20080703, end: 20140205

REACTIONS (6)
  - Urticaria [None]
  - Angioedema [None]
  - International normalised ratio increased [None]
  - Drug interaction [None]
  - Atrial fibrillation [None]
  - Bronchitis [None]
